FAERS Safety Report 14873648 (Version 1)
Quarter: 2018Q2

REPORT INFORMATION
  Report Type: Spontaneous
  Country: US (occurrence: US)
  Receive Date: 20180424
  Receipt Date: 20180424
  Transmission Date: 20180711
  Serious: Yes (Hospitalization)
  Sender: FDA-Public Use
  Company Number: None

PATIENT
  Age: 71 Year
  Sex: Female

DRUGS (9)
  1. XELJANZ [Suspect]
     Active Substance: TOFACITINIB CITRATE
     Indication: RHEUMATOID ARTHRITIS
     Route: 048
     Dates: start: 20151103
  2. LEVOTHYROXIN [Concomitant]
     Active Substance: LEVOTHYROXINE
     Dates: start: 20180316
  3. LIVALO [Concomitant]
     Active Substance: PITAVASTATIN CALCIUM
     Dates: start: 20170828
  4. IRON [Concomitant]
     Active Substance: IRON
     Dates: start: 20180316
  5. OXYBUTYNIN. [Concomitant]
     Active Substance: OXYBUTYNIN CHLORIDE
     Dates: start: 20180316
  6. METFORMIN [Concomitant]
     Active Substance: METFORMIN HYDROCHLORIDE
     Dates: start: 20180316
  7. ROPINROLE [Concomitant]
     Dates: start: 20180316
  8. XARELTO [Concomitant]
     Active Substance: RIVAROXABAN
     Dates: start: 20180316
  9. ATENOLOL. [Concomitant]
     Active Substance: ATENOLOL
     Dates: start: 20180316

REACTIONS (4)
  - Intervertebral disc protrusion [None]
  - Depression [None]
  - Sciatica [None]
  - Back pain [None]
